FAERS Safety Report 8942046 (Version 1)
Quarter: 2012Q4

REPORT INFORMATION
  Report Type: 
  Country: BR (occurrence: BR)
  Receive Date: 20121203
  Receipt Date: 20121203
  Transmission Date: 20130627
  Serious: Yes (Other)
  Sender: FDA-Public Use
  Company Number: BR-GLAXOSMITHKLINE-A1003587A

PATIENT
  Sex: Female

DRUGS (1)
  1. NIQUITIN [Suspect]
     Indication: SMOKING CESSATION THERAPY

REACTIONS (7)
  - Haematemesis [Unknown]
  - Diarrhoea [Unknown]
  - Headache [Unknown]
  - Dizziness [Unknown]
  - Chills [Unknown]
  - Vomiting [Unknown]
  - Influenza [Unknown]
